FAERS Safety Report 17760426 (Version 1)
Quarter: 2020Q2

REPORT INFORMATION
  Report Type: Report from Study
  Country: IT (occurrence: IT)
  Receive Date: 20200508
  Receipt Date: 20200508
  Transmission Date: 20200714
  Serious: Yes (Other)
  Sender: FDA-Public Use
  Company Number: IT-ACCORD-180876

PATIENT
  Age: 77 Year
  Sex: Male

DRUGS (3)
  1. CISPLATIN ACCORD HEALTHCARE ITALY [Suspect]
     Active Substance: CISPLATIN
     Indication: BILIARY NEOPLASM
     Dosage: STRENGTH:  1 MG / ML , CONCENTRATE FOR SOLUTION
     Route: 041
     Dates: start: 20200122, end: 20200319
  2. OMEPRAZOLE ALTER [Concomitant]
     Dosage: STRENGTH:  10 MG
     Route: 048
  3. VENLAFAXINE ALTER [Concomitant]
     Dosage: STRENGTH: 75 MG, MODIFIED-RELEASE HARD CAPSULES
     Route: 048

REACTIONS (2)
  - Chills [Recovered/Resolved]
  - Dysphonia [Recovered/Resolved]

NARRATIVE: CASE EVENT DATE: 20200319
